FAERS Safety Report 4440084-8 (Version None)
Quarter: 2004Q3

REPORT INFORMATION
  Report Type: 
  Country: None (occurrence: None)
  Receive Date: 20040902
  Receipt Date: 20040826
  Transmission Date: 20050211
  Serious: Yes (Disabling)
  Sender: FDA-Public Use
  Company Number: US-MERCK-0408USA02147

PATIENT
  Age: 78 Year
  Sex: Female

DRUGS (3)
  1. FOSAMAX [Suspect]
     Indication: OSTEOPOROSIS
     Route: 048
     Dates: start: 20040801
  2. DIURETIC (UNSPECIFIED) [Concomitant]
     Route: 065
  3. PRILOSEC [Concomitant]
     Route: 065

REACTIONS (2)
  - JOINT SWELLING [None]
  - PYREXIA [None]
